FAERS Safety Report 16140376 (Version 1)
Quarter: 2019Q2

REPORT INFORMATION
  Report Type: Report from Study
  Country: ZA (occurrence: ZA)
  Receive Date: 20190401
  Receipt Date: 20190401
  Transmission Date: 20190711
  Serious: Yes (Death)
  Sender: FDA-Public Use
  Company Number: PHHY2019ZA072693

PATIENT
  Sex: Male

DRUGS (1)
  1. ZOMEVEK [Suspect]
     Active Substance: VALSARTAN
     Indication: HYPERTENSION
     Dosage: 80 MG, UNK
     Route: 048
     Dates: start: 201810, end: 201903

REACTIONS (5)
  - Hypertension [Fatal]
  - Gout [Fatal]
  - Cardiac failure [Fatal]
  - Renal failure [Fatal]
  - Diabetes mellitus [Fatal]
